FAERS Safety Report 10086936 (Version 1)
Quarter: 2014Q2

REPORT INFORMATION
  Report Type: Spontaneous
  Country: BR (occurrence: BR)
  Receive Date: 20140418
  Receipt Date: 20140418
  Transmission Date: 20141212
  Serious: Yes (Other)
  Sender: FDA-Public Use
  Company Number: PHHY2014BR047126

PATIENT
  Age: 45 Year
  Sex: Male

DRUGS (3)
  1. MYFORTIC [Suspect]
     Indication: LIVER TRANSPLANT
     Dosage: UNK UKN, UNK
     Route: 048
  2. CERTICAN [Suspect]
     Indication: LIVER TRANSPLANT
     Dosage: 1 MG, BID START ON 20 TO 30 DAYS AGO
     Route: 048
     Dates: end: 20140413
  3. CERTICAN [Suspect]
     Indication: PROPHYLAXIS AGAINST TRANSPLANT REJECTION

REACTIONS (2)
  - Pneumonitis [Unknown]
  - Diarrhoea [Unknown]
